FAERS Safety Report 11775699 (Version 2)
Quarter: 2017Q2

REPORT INFORMATION
  Report Type: Spontaneous
  Country: US (occurrence: US)
  Receive Date: 20151125
  Receipt Date: 20170404
  Transmission Date: 20170829
  Serious: No
  Sender: FDA-Public Use
  Company Number: US-JNJFOC-20151107148

PATIENT
  Sex: Male

DRUGS (8)
  1. RISPERDAL [Suspect]
     Active Substance: RISPERIDONE
     Indication: INSOMNIA
     Route: 048
     Dates: start: 2013, end: 2014
  2. RISPERDAL [Suspect]
     Active Substance: RISPERIDONE
     Indication: INSOMNIA
     Route: 048
     Dates: start: 20131106, end: 20141107
  3. RISPERDAL [Suspect]
     Active Substance: RISPERIDONE
     Indication: DEPRESSION
     Route: 048
     Dates: start: 20131106, end: 20141107
  4. RISPERDAL [Suspect]
     Active Substance: RISPERIDONE
     Indication: HYPERTENSION
     Route: 048
     Dates: start: 2013, end: 2014
  5. RISPERDAL [Suspect]
     Active Substance: RISPERIDONE
     Indication: ANXIETY DISORDER
     Route: 048
     Dates: start: 20131106, end: 20141107
  6. RISPERDAL [Suspect]
     Active Substance: RISPERIDONE
     Indication: ANXIETY DISORDER
     Route: 048
     Dates: start: 2013, end: 2014
  7. RISPERDAL [Suspect]
     Active Substance: RISPERIDONE
     Indication: HYPERTENSION
     Route: 048
     Dates: start: 20131106, end: 20141107
  8. RISPERDAL [Suspect]
     Active Substance: RISPERIDONE
     Indication: DEPRESSION
     Route: 048
     Dates: start: 2013, end: 2014

REACTIONS (4)
  - Off label use [Unknown]
  - Gynaecomastia [Unknown]
  - Product use in unapproved indication [Unknown]
  - Abnormal weight gain [Unknown]

NARRATIVE: CASE EVENT DATE: 2013
